FAERS Safety Report 6861065-0 (Version None)
Quarter: 2010Q3

REPORT INFORMATION
  Report Type: 
  Country: None (occurrence: None)
  Receive Date: 20100720
  Receipt Date: 20100707
  Transmission Date: 20110219
  Serious: Yes (Other)
  Sender: FDA-Public Use
  Company Number: PHHY2010NL44559

PATIENT
  Sex: Male

DRUGS (12)
  1. ZOMETA [Suspect]
     Dosage: 4 MG, PER 5 ML FOR 20 MINUTES
     Route: 042
  2. ZOMETA [Suspect]
     Dosage: UNK
     Dates: start: 20090928
  3. ZOMETA [Suspect]
     Dosage: UNK
     Dates: start: 20091026
  4. ZOMETA [Suspect]
     Dosage: UNK
     Dates: start: 20091123
  5. ZOMETA [Suspect]
     Dosage: UNK
     Dates: start: 20091221
  6. ZOMETA [Suspect]
     Dosage: UNK
     Dates: start: 20100118
  7. ZOMETA [Suspect]
     Dosage: UNK
     Dates: start: 20100215
  8. ZOMETA [Suspect]
     Dosage: UNK
     Dates: start: 20100311
  9. ZOMETA [Suspect]
     Dosage: UNK
     Dates: start: 20100412
  10. ZOMETA [Suspect]
     Dosage: UNK
     Dates: start: 20100510
  11. ZOMETA [Suspect]
     Dosage: UNK
     Dates: start: 20100607
  12. ZOMETA [Suspect]
     Dosage: UNK
     Dates: start: 20100707

REACTIONS (4)
  - ASTHENIA [None]
  - FATIGUE [None]
  - GENERAL PHYSICAL HEALTH DETERIORATION [None]
  - NEOPLASM MALIGNANT [None]
